FAERS Safety Report 12242720 (Version 2)
Quarter: 2017Q1

REPORT INFORMATION
  Report Type: Spontaneous
  Country: US (occurrence: US)
  Receive Date: 20160406
  Receipt Date: 20170127
  Transmission Date: 20170428
  Serious: Yes (Other)
  Sender: FDA-Public Use
  Company Number: US-ELI_LILLY_AND_COMPANY-US201604000355

PATIENT
  Sex: Female

DRUGS (7)
  1. ADVIL (MEFENAMIC ACID) [Concomitant]
     Active Substance: MEFENAMIC ACID
     Indication: PRODUCT USED FOR UNKNOWN INDICATION
     Dosage: 800 MG, PRN
     Route: 065
  2. METFORMIN [Concomitant]
     Active Substance: METFORMIN HYDROCHLORIDE
     Indication: PRODUCT USED FOR UNKNOWN INDICATION
     Dosage: 1000 MG, BID
     Route: 065
  3. CYMBALTA [Suspect]
     Active Substance: DULOXETINE HYDROCHLORIDE
     Indication: MAJOR DEPRESSION
     Dosage: 30 MG, UNKNOWN
     Route: 065
     Dates: start: 20140301
  4. CYMBALTA [Suspect]
     Active Substance: DULOXETINE HYDROCHLORIDE
     Dosage: 20 MG, QD
     Route: 065
     Dates: start: 20160224
  5. LOSARTAN AND HYDROCHLOROTHIAZIDE [Concomitant]
     Active Substance: HYDROCHLOROTHIAZIDE\LOSARTAN POTASSIUM
     Indication: PRODUCT USED FOR UNKNOWN INDICATION
     Dosage: UNK, UNKNOWN
     Route: 065
  6. HUMULIN NOS [Concomitant]
     Active Substance: INSULIN HUMAN
     Indication: PRODUCT USED FOR UNKNOWN INDICATION
     Dosage: 70/30 U, BID
     Route: 065
  7. CYMBALTA [Suspect]
     Active Substance: DULOXETINE HYDROCHLORIDE
     Dosage: 60 MG, QD
     Route: 065
     Dates: start: 201407

REACTIONS (25)
  - Vertigo [Unknown]
  - Dysphoria [Unknown]
  - Affect lability [Unknown]
  - Headache [Unknown]
  - Anxiety [Unknown]
  - Agitation [Unknown]
  - Drug withdrawal syndrome [Unknown]
  - Mood swings [Unknown]
  - Suicidal ideation [Unknown]
  - Irritability [Unknown]
  - Dizziness [Unknown]
  - Crying [Unknown]
  - Sleep disorder [Unknown]
  - Nausea [Unknown]
  - Sensory disturbance [Unknown]
  - Amnesia [Unknown]
  - Insomnia [Unknown]
  - Depression [Unknown]
  - Hypomania [Unknown]
  - Paraesthesia [Unknown]
  - Nightmare [Unknown]
  - Lethargy [Unknown]
  - Suicide attempt [Unknown]
  - Delusion [Unknown]
  - Confusional state [Unknown]
